FAERS Safety Report 23068111 (Version 2)
Quarter: 2023Q4

REPORT INFORMATION
  Report Type: Spontaneous
  Country: US (occurrence: US)
  Receive Date: 20231016
  Receipt Date: 20231120
  Transmission Date: 20240110
  Serious: Yes (Life-Threatening, Hospitalization, Other)
  Sender: FDA-Public Use
  Company Number: US-SAMSUNG BIOEPIS-SB-2023-27461

PATIENT
  Age: 33 Year
  Sex: Male

DRUGS (1)
  1. ADALIMUMAB [Suspect]
     Active Substance: ADALIMUMAB\ISOPROPYL ALCOHOL
     Indication: Ankylosing spondylitis
     Dosage: UNKNOWN
     Route: 065

REACTIONS (4)
  - Pneumonia necrotising [Recovering/Resolving]
  - Toxic shock syndrome streptococcal [Unknown]
  - Immunodeficiency [Unknown]
  - Exposure to communicable disease [Unknown]
